FAERS Safety Report 10045339 (Version 1)
Quarter: 2014Q1

REPORT INFORMATION
  Report Type: Spontaneous
  Country: US (occurrence: None)
  Receive Date: 20140306
  Receipt Date: 20140306
  Transmission Date: 20141002
  Serious: Yes (Hospitalization)
  Sender: FDA-Public Use
  Company Number: 163-21880-13044852

PATIENT
  Age: 66 Year
  Sex: Male
  Weight: 64.86 kg

DRUGS (15)
  1. REVLIMID (LENALIDOMIDE) (25 MILLIGRAM, CAPSULES) [Suspect]
     Indication: PLASMA CELL MYELOMA
     Route: 048
     Dates: start: 200811
  2. ZOLOFT (SERTRALINE HYDROCHLORIDE) (TABLETS) [Concomitant]
  3. DEXAMETHASONE (DEXAMETHASONE) (TABLETS) [Concomitant]
  4. LIPITOR (ATORVASTATIN) (TABLETS) [Concomitant]
  5. NEURONTIN (GABAPENTIN) [Concomitant]
  6. AREDIA (PAMIDRONATE DISODIUM) [Concomitant]
  7. ACYCLOVIR (ACICLOVIR) (CAPSULES) [Concomitant]
  8. MEPRON (ATOVAQUONE) (CAPSULES) [Concomitant]
  9. PRILOSEC (OMEPRAZOLE) (CAPSULES) [Concomitant]
  10. MULTIVITAMINS (MULTIVITAMINS) (CAPSULES) [Concomitant]
  11. CALCIUM CITRATE (CALCIUM CITRATE) [Concomitant]
  12. FINASTERIDE (FINASTERIDE) [Concomitant]
  13. FLUCONAZOLE (FLUCONAZOLE) [Concomitant]
  14. OXYCONTIN (OXYCODONE HYDROCHLORIDE) [Concomitant]
  15. XARELTO (RIVAROXABAN) [Concomitant]

REACTIONS (9)
  - Disorientation [None]
  - Pyrexia [None]
  - Back pain [None]
  - Haemoglobin decreased [None]
  - Diarrhoea [None]
  - Clostridium difficile infection [None]
  - Plasma cell myeloma [None]
  - Protein total increased [None]
  - Drug ineffective [None]
